FAERS Safety Report 15818978 (Version 1)
Quarter: 2019Q1

REPORT INFORMATION
  Report Type: Spontaneous
  Country: NL (occurrence: NL)
  Receive Date: 20190114
  Receipt Date: 20190114
  Transmission Date: 20190417
  Serious: Yes (Life-Threatening, Hospitalization)
  Sender: FDA-Public Use
  Company Number: NL-AMGEN-NLDSP2019002432

PATIENT
  Age: 67 Year
  Sex: Male

DRUGS (12)
  1. REPATHA [Suspect]
     Active Substance: EVOLOCUMAB
     Indication: HYPERCHOLESTEROLAEMIA
     Dosage: 140 MG/ML, Q2WK
     Route: 065
     Dates: start: 20180202, end: 20181213
  2. PREDNISOLON [Concomitant]
     Active Substance: PREDNISOLONE
     Dosage: UNK
  3. THEOPHYLLINE [Concomitant]
     Active Substance: THEOPHYLLINE ANHYDROUS
     Dosage: 2 DF, Q12H
  4. AZITROMYCINE [Concomitant]
     Active Substance: AZITHROMYCIN
     Dosage: 1 DF, QOD
  5. ACETYLSALICYLZUUR [Concomitant]
     Active Substance: ASPIRIN
     Dosage: 1 DF, QD
  6. SALBUTAMOL [Concomitant]
     Active Substance: ALBUTEROL
     Dosage: 1 DF, 1-4D2I
  7. METOPROLOL. [Concomitant]
     Active Substance: METOPROLOL
     Dosage: 1 DF, QD
  8. INFLUENZA [Concomitant]
     Active Substance: INFLUENZA VIRUS VACCINE
     Dosage: 1 DF, UNK
  9. EZETIMIBA [Concomitant]
     Active Substance: EZETIMIBE
     Dosage: 10 MG, QD
  10. ACETAZOLAMIDE. [Concomitant]
     Active Substance: ACETAZOLAMIDE
     Dosage: 1 DF, QD
  11. CICLESONIDE [Concomitant]
     Active Substance: CICLESONIDE
     Dosage: 1 DF, QD
  12. OLODATEROL + TIOTROPIUM [Concomitant]
     Dosage: 2 DF, QD

REACTIONS (2)
  - Haemoptysis [Recovering/Resolving]
  - Chronic obstructive pulmonary disease [Recovering/Resolving]

NARRATIVE: CASE EVENT DATE: 20181101
